FAERS Safety Report 8003293-7 (Version None)
Quarter: 2011Q4

REPORT INFORMATION
  Report Type: 
  Country: None (occurrence: None)
  Receive Date: 20111222
  Receipt Date: 20111219
  Transmission Date: 20120403
  Serious: Yes (Other)
  Sender: FDA-Public Use
  Company Number: PHEH2011US03333

PATIENT
  Sex: Female
  Weight: 68.027 kg

DRUGS (20)
  1. BORAGE OIL [Concomitant]
     Dosage: UNK UKN, QD
  2. EFFEXOR [Concomitant]
     Dosage: 100 MG, UNK
  3. IBUPROFEN [Concomitant]
     Dosage: UNK UKN, OT
  4. GILENYA [Suspect]
     Indication: MULTIPLE SCLEROSIS
     Dosage: 0.5 MG, QD
     Route: 048
     Dates: start: 20110819, end: 20110901
  5. NEXIUM                             /01479303/ [Concomitant]
     Dosage: 20 MG, UNK
  6. LOVAZA [Concomitant]
     Dosage: 1200 MG, UNK
  7. VITAMIN D [Concomitant]
     Dosage: UNK UKN, UNK
  8. COQ10 [Concomitant]
     Dosage: UNK UKN, UNK
  9. GLUCOSAMINE /CHONDROITIN /MSM [Concomitant]
     Dosage: UNK UKN, QD
  10. BYSTOLIC [Concomitant]
     Dosage: 10 MG, UNK
  11. LISINOPRIL [Concomitant]
     Dosage: 10 MG, UNK
  12. PRIMROSE OIL [Concomitant]
     Dosage: UNK UKN, UNK
  13. PROGESTERONE [Concomitant]
     Dosage: UNK UKN, UNK
  14. CALCIUM WITH VITAMIN D [Concomitant]
     Dosage: UNK UKN, UNK
  15. FLUOXETINE [Concomitant]
     Dosage: 20 MG, QD
  16. LIPITOR [Concomitant]
     Dosage: 10 MG, UNK
  17. ASPIRIN [Concomitant]
     Dosage: 81 MG, UNK
  18. AVONEX [Concomitant]
     Dosage: 30 UG, UNK
  19. VITAMIN B COMPLEX CAP [Concomitant]
     Dosage: UNK UKN, OT
  20. ESTRADIOL [Concomitant]
     Dosage: 2 MG, UNK

REACTIONS (6)
  - HYPOAESTHESIA [None]
  - MULTIPLE SCLEROSIS RELAPSE [None]
  - PARAESTHESIA [None]
  - COGNITIVE DISORDER [None]
  - CHEST PAIN [None]
  - HYPERTENSION [None]
